FAERS Safety Report 5357918-5 (Version None)
Quarter: 2007Q2

REPORT INFORMATION
  Report Type: 
  Country: None (occurrence: None)
  Receive Date: 20070612
  Receipt Date: 20070531
  Transmission Date: 20071010
  Serious: Yes (Other)
  Sender: FDA-Public Use
  Company Number: TPA2007A00755

PATIENT
  Age: 5 Decade
  Sex: Female

DRUGS (2)
  1. ROZEREM [Suspect]
     Dosage: PER ORAL
     Route: 048
  2. SEROQUEL [Suspect]

REACTIONS (9)
  - CARBON MONOXIDE POISONING [None]
  - DISTURBANCE IN ATTENTION [None]
  - DRUG INTERACTION [None]
  - IRRITABILITY [None]
  - MEMORY IMPAIRMENT [None]
  - MORBID THOUGHTS [None]
  - ROAD TRAFFIC ACCIDENT [None]
  - SOMNOLENCE [None]
  - SUICIDAL IDEATION [None]
